FAERS Safety Report 13628623 (Version 2)
Quarter: 2017Q3

REPORT INFORMATION
  Report Type: Spontaneous
  Country: US (occurrence: US)
  Receive Date: 20170607
  Receipt Date: 20170717
  Transmission Date: 20171127
  Serious: Yes (Hospitalization, Other)
  Sender: FDA-Public Use
  Company Number: US-JNJFOC-20170603136

PATIENT
  Age: 70 Year
  Sex: Male
  Weight: 99.34 kg

DRUGS (9)
  1. DHEA [Concomitant]
     Active Substance: PRASTERONE
     Indication: ROUTINE HEALTH MAINTENANCE
     Route: 065
  2. XARELTO [Suspect]
     Active Substance: RIVAROXABAN
     Indication: CEREBROVASCULAR ACCIDENT PROPHYLAXIS
     Dosage: DRUG START DATE: 2011 OR 2012 OR 2013.??DRUG STOP DATE: 3 DAYS BEFORE 11-MAR-2017.
     Route: 048
     Dates: end: 20170307
  3. XARELTO [Suspect]
     Active Substance: RIVAROXABAN
     Indication: CEREBROVASCULAR ACCIDENT PROPHYLAXIS
     Dosage: CONSUMER REPORTED NOT TAKING RIVAROXABAN AGAIN.
     Route: 048
     Dates: start: 20170530, end: 20170530
  4. CENTRUM SILVER [Concomitant]
     Active Substance: MINERALS\VITAMINS
     Indication: ROUTINE HEALTH MAINTENANCE
     Route: 065
  5. DILTIAZEM. [Concomitant]
     Active Substance: DILTIAZEM
     Indication: HEART RATE
     Route: 065
  6. XARELTO [Suspect]
     Active Substance: RIVAROXABAN
     Indication: CEREBROVASCULAR ACCIDENT PROPHYLAXIS
     Route: 048
     Dates: start: 201703, end: 201703
  7. XARELTO [Suspect]
     Active Substance: RIVAROXABAN
     Indication: ATRIAL FIBRILLATION
     Route: 048
     Dates: start: 201703, end: 201703
  8. XARELTO [Suspect]
     Active Substance: RIVAROXABAN
     Indication: ATRIAL FIBRILLATION
     Dosage: DRUG START DATE: 2011 OR 2012 OR 2013.??DRUG STOP DATE: 3 DAYS BEFORE 11-MAR-2017.
     Route: 048
     Dates: end: 20170307
  9. XARELTO [Suspect]
     Active Substance: RIVAROXABAN
     Indication: ATRIAL FIBRILLATION
     Dosage: CONSUMER REPORTED NOT TAKING RIVAROXABAN AGAIN.
     Route: 048
     Dates: start: 20170530, end: 20170530

REACTIONS (4)
  - Bladder cancer [Not Recovered/Not Resolved]
  - Haemorrhage urinary tract [Recovered/Resolved]
  - Blood urine present [Recovering/Resolving]
  - Tooth disorder [Unknown]

NARRATIVE: CASE EVENT DATE: 201703
